FAERS Safety Report 24423566 (Version 2)
Quarter: 2024Q4

REPORT INFORMATION
  Report Type: Spontaneous
  Country: US (occurrence: US)
  Receive Date: 20241010
  Receipt Date: 20241021
  Transmission Date: 20250114
  Serious: No
  Sender: ADVANZ PHARMA
  Company Number: US-ADVANZ PHARMA-202409007971

PATIENT

DRUGS (1)
  1. PHOTOFRIN [Suspect]
     Active Substance: PORFIMER SODIUM
     Dosage: UNK ( INFUSED OVER 3-5 MIN AS SINGLE DOSE)

REACTIONS (7)
  - Skin exfoliation [Unknown]
  - Lip exfoliation [Unknown]
  - Nasal dryness [Unknown]
  - Lip dry [Unknown]
  - Swelling [Unknown]
  - Erythema [Unknown]
  - Pruritus [Unknown]

NARRATIVE: CASE EVENT DATE: 20240926
